FAERS Safety Report 23689946 (Version 1)
Quarter: 2024Q2

REPORT INFORMATION
  Report Type: Other
  Country: KZ (occurrence: KZ)
  Receive Date: 20240401
  Receipt Date: 20240401
  Transmission Date: 20240715
  Serious: Yes (Other)
  Sender: FDA-Public Use
  Company Number: KZ-MACLEODS PHARMA EU LTD-MAC2024046542

PATIENT

DRUGS (1)
  1. PYRAZINAMIDE [Suspect]
     Active Substance: PYRAZINAMIDE
     Indication: Pulmonary tuberculosis
     Dosage: UNK(ATX: J04AK01, SERIES: ERV 821007A)
     Route: 065
     Dates: start: 20240203, end: 20240207

REACTIONS (1)
  - Hepatitis toxic [Recovering/Resolving]
